FAERS Safety Report 9376124 (Version 2)
Quarter: 2013Q3

REPORT INFORMATION
  Report Type: Spontaneous
  Country: DE (occurrence: DE)
  Receive Date: 20130701
  Receipt Date: 20130709
  Transmission Date: 20140515
  Serious: Yes (Other)
  Sender: FDA-Public Use
  Company Number: DE-JNJFOC-20130616374

PATIENT
  Age: 49 Year
  Sex: Female

DRUGS (3)
  1. REGAINE FRAUEN [Suspect]
     Route: 061
  2. REGAINE FRAUEN [Suspect]
     Indication: PRODUCT USED FOR UNKNOWN INDICATION
     Route: 061
     Dates: start: 201305
  3. INSULIN [Concomitant]
     Indication: PRODUCT USED FOR UNKNOWN INDICATION
     Route: 065

REACTIONS (3)
  - Fluid retention [Unknown]
  - Dandruff [Recovering/Resolving]
  - Headache [Recovering/Resolving]
